FAERS Safety Report 21968757 (Version 1)
Quarter: 2023Q1

REPORT INFORMATION
  Report Type: Spontaneous
  Country: US (occurrence: US)
  Receive Date: 20230208
  Receipt Date: 20230208
  Transmission Date: 20230417
  Serious: Yes (Other)
  Sender: FDA-Public Use
  Company Number: US-ALLERGAN-2235635US

PATIENT
  Sex: Female
  Weight: 68.027 kg

DRUGS (2)
  1. VRAYLAR [Suspect]
     Active Substance: CARIPRAZINE
     Indication: Bipolar I disorder
     Dosage: 1.5 MG, QD
     Route: 048
     Dates: start: 20220410, end: 20220710
  2. ALPRAZOLAM [Concomitant]
     Active Substance: ALPRAZOLAM
     Indication: Anxiety
     Dosage: 10 MG, Q8HR
     Route: 048
     Dates: start: 20220410

REACTIONS (4)
  - Pseudostroke [Recovered/Resolved]
  - Syncope [Recovered/Resolved]
  - Muscular weakness [Recovered/Resolved]
  - Hypersensitivity [Unknown]

NARRATIVE: CASE EVENT DATE: 20220610
